FAERS Safety Report 6694830-3 (Version None)
Quarter: 2010Q2

REPORT INFORMATION
  Report Type: 
  Country: None (occurrence: None)
  Receive Date: 20100423
  Receipt Date: 20100420
  Transmission Date: 20101027
  Serious: Yes (Hospitalization, Other)
  Sender: FDA-Public Use
  Company Number: US-ELI_LILLY_AND_COMPANY-US201004005465

PATIENT
  Sex: Female

DRUGS (3)
  1. HUMALOG [Suspect]
     Dosage: 30 U, 3/D
  2. ANTIBIOTICS [Concomitant]
  3. CORTICOSTEROIDS [Concomitant]

REACTIONS (10)
  - ANXIETY [None]
  - ASTHMA [None]
  - BLOOD GLUCOSE INCREASED [None]
  - HYPERHIDROSIS [None]
  - INJECTION SITE ERYTHEMA [None]
  - INJECTION SITE HAEMATOMA [None]
  - INJURY [None]
  - LOCALISED INFECTION [None]
  - NEEDLE ISSUE [None]
  - TOOTH EXTRACTION [None]
